FAERS Safety Report 21617969 (Version 1)
Quarter: 2022Q4

REPORT INFORMATION
  Report Type: Report from Study
  Country: CA (occurrence: CA)
  Receive Date: 20221119
  Receipt Date: 20221119
  Transmission Date: 20230113
  Serious: Yes (Hospitalization)
  Sender: FDA-Public Use
  Company Number: CA-002147023-NVSC2022CA191230

PATIENT
  Sex: Female

DRUGS (4)
  1. ERELZI [Suspect]
     Active Substance: ETANERCEPT-SZZS
     Indication: Rheumatoid arthritis
     Dosage: 25 MG, BIW
     Route: 058
     Dates: start: 20220530
  2. ERELZI [Suspect]
     Active Substance: ETANERCEPT-SZZS
     Dosage: 50 MG
     Route: 058
  3. ERELZI [Suspect]
     Active Substance: ETANERCEPT-SZZS
     Dosage: 25 MG, BIW
     Route: 058
     Dates: start: 20221104
  4. ENBREL [Concomitant]
     Active Substance: ETANERCEPT
     Indication: Product used for unknown indication
     Dosage: UNK, OTHER
     Route: 058
     Dates: start: 2003

REACTIONS (3)
  - Cardiac failure [Recovering/Resolving]
  - Pulmonary oedema [Recovering/Resolving]
  - Osteoarthritis [Unknown]
